FAERS Safety Report 8970031 (Version 1)
Quarter: 2012Q4

REPORT INFORMATION
  Report Type: 
  Country: BR (occurrence: BR)
  Receive Date: 20121217
  Receipt Date: 20121217
  Transmission Date: 20130627
  Serious: Yes (Other)
  Sender: FDA-Public Use
  Company Number: BR-ELI_LILLY_AND_COMPANY-BR201212002007

PATIENT
  Age: 40 Year
  Sex: Female
  Weight: 70 kg

DRUGS (3)
  1. CYMBALTA [Suspect]
     Indication: FIBROMYALGIA
     Dosage: 60 mg, qd
     Route: 048
     Dates: start: 201211
  2. CELEBRA [Concomitant]
     Indication: PAIN
     Dosage: 200 mg, unknown
     Route: 065
  3. LEXOTAN [Concomitant]
     Indication: RELAXATION THERAPY
     Dosage: UNK, unknown
     Route: 065

REACTIONS (4)
  - Dyspnoea [Recovered/Resolved]
  - Alopecia [Not Recovered/Not Resolved]
  - Laboratory test abnormal [Unknown]
  - Drug dose omission [Unknown]
